FAERS Safety Report 5148625-2 (Version None)
Quarter: 2006Q4

REPORT INFORMATION
  Report Type: 
  Country: None (occurrence: None)
  Receive Date: 20061107
  Receipt Date: 20061017
  Transmission Date: 20070319
  Serious: Yes (Life-Threatening)
  Sender: FDA-Public Use
  Company Number: 2006-08-0051

PATIENT
  Age: 45 Year
  Sex: Male

DRUGS (4)
  1. REBETOL [Suspect]
     Indication: HEPATITIS CHRONIC ACTIVE
     Dosage: 800 MG; QD; PO
     Route: 048
     Dates: start: 20060112, end: 20060119
  2. PEGAYS (PEGYLATED INTERFERON ALFA-2A) (PEGINTERFERON ALFA-2A) [Suspect]
     Indication: HEPATITIS CHRONIC ACTIVE
     Dosage: 180 MCG; QW; SC
     Route: 058
     Dates: start: 20060112, end: 20060119
  3. COMBIVIR [Concomitant]
  4. SUSTIVA [Concomitant]

REACTIONS (3)
  - ACUTE CORONARY SYNDROME [None]
  - CORONARY ARTERY DISEASE [None]
  - SMOKER [None]
